FAERS Safety Report 4983242-6 (Version None)
Quarter: 2006Q2

REPORT INFORMATION
  Report Type: 
  Country: None (occurrence: None)
  Receive Date: 20060426
  Receipt Date: 20060419
  Transmission Date: 20061013
  Serious: Yes (Other)
  Sender: FDA-Public Use
  Company Number: PHEH2006US05151

PATIENT
  Sex: Female

DRUGS (2)
  1. LESCOL XL [Suspect]
     Dosage: 80 MG, QD
  2. PREVACID [Suspect]

REACTIONS (2)
  - STOMACH DISCOMFORT [None]
  - THROAT TIGHTNESS [None]
